FAERS Safety Report 13288117 (Version 2)
Quarter: 2017Q3

REPORT INFORMATION
  Report Type: Spontaneous
  Country: US (occurrence: US)
  Receive Date: 20170302
  Receipt Date: 20170703
  Transmission Date: 20171127
  Serious: Yes (Death, Hospitalization, Other)
  Sender: FDA-Public Use
  Company Number: US-BAUSCH-BL-2017-005158

PATIENT
  Age: 65 Year
  Sex: Female

DRUGS (1)
  1. XIFAXAN [Suspect]
     Active Substance: RIFAXIMIN
     Indication: HEPATOCELLULAR CARCINOMA
     Route: 065

REACTIONS (10)
  - Ammonia abnormal [Unknown]
  - Adrenomegaly [Unknown]
  - Unevaluable event [Unknown]
  - Therapeutic embolisation [Unknown]
  - Hospice care [Unknown]
  - Adrenal gland cancer [Fatal]
  - Pulmonary mass [Fatal]
  - Hospitalisation [Unknown]
  - Off label use [Unknown]
  - Hepatic cancer [Fatal]

NARRATIVE: CASE EVENT DATE: 2016
